FAERS Safety Report 4359693-X (Version None)
Quarter: 2004Q2

REPORT INFORMATION
  Report Type: 
  Country: None (occurrence: None)
  Receive Date: 20040513
  Receipt Date: 20040427
  Transmission Date: 20050107
  Serious: Yes (Hospitalization)
  Sender: FDA-Public Use
  Company Number: 2004210181GB

PATIENT
  Age: 78 Year
  Sex: Female

DRUGS (7)
  1. CAMPTOSAR [Suspect]
     Indication: RECTAL CANCER
     Dosage: 96 MG, CYCLIC, IV
     Route: 042
     Dates: start: 20040324, end: 20040414
  2. CAPECITABINE (CAPECITABINE) [Suspect]
     Indication: RECTAL CANCER
     Dosage: 2600 MG, CYCLIC, IV
     Route: 042
     Dates: start: 20040324, end: 20040414
  3. CYCLIZINE (CYCLIZINE) [Concomitant]
  4. HALOPERIDOL [Concomitant]
  5. LOPERAMIDE HCL [Concomitant]
  6. DIGOXIN [Concomitant]
  7. WARFARIN SODIUM [Concomitant]

REACTIONS (8)
  - CEREBROVASCULAR DISORDER [None]
  - DYSPHAGIA [None]
  - FATIGUE [None]
  - MUCOSAL INFLAMMATION [None]
  - NAUSEA [None]
  - OESOPHAGEAL SPASM [None]
  - OESOPHAGITIS [None]
  - VOMITING [None]
